FAERS Safety Report 5397699-2 (Version None)
Quarter: 2007Q3

REPORT INFORMATION
  Report Type: 
  Country: None (occurrence: None)
  Receive Date: 20070726
  Receipt Date: 20070718
  Transmission Date: 20080115
  Serious: Yes (Death, Other)
  Sender: FDA-Public Use
  Company Number: US-AVENTIS-200712251US

PATIENT
  Age: 48 Year
  Sex: Male

DRUGS (8)
  1. LOVENOX [Suspect]
     Indication: THROMBOSIS PROPHYLAXIS
     Dates: start: 20070101, end: 20070101
  2. COUMADIN [Concomitant]
     Dosage: DOSE: UNK
  3. PREDNISONE [Concomitant]
     Dosage: DOSE: UNK
  4. ARAVA [Concomitant]
     Dosage: DOSE: UNK
  5. CELEBREX [Concomitant]
     Dosage: DOSE: UNK
  6. COZAAR [Concomitant]
     Dosage: DOSE: UNK
  7. LIPITOR [Concomitant]
     Dosage: DOSE: UNK
  8. HUMIRA [Concomitant]
     Dosage: DOSE: UNK

REACTIONS (13)
  - ARRHYTHMIA [None]
  - ARTERIAL THROMBOSIS [None]
  - GASTROINTESTINAL DISORDER [None]
  - HEPARIN-INDUCED THROMBOCYTOPENIA [None]
  - INTESTINAL PERFORATION [None]
  - INTRA-ABDOMINAL HAEMORRHAGE [None]
  - MULTI-ORGAN FAILURE [None]
  - PAIN IN EXTREMITY [None]
  - PERIPHERAL ISCHAEMIA [None]
  - PERITONEAL HAEMORRHAGE [None]
  - PLATELET COUNT DECREASED [None]
  - RASH [None]
  - SEPSIS [None]
